FAERS Safety Report 20081460 (Version 1)
Quarter: 2021Q4

REPORT INFORMATION
  Report Type: Spontaneous
  Country: GB (occurrence: GB)
  Receive Date: 20211117
  Receipt Date: 20211117
  Transmission Date: 20220304
  Serious: Yes (Other)
  Sender: FDA-Public Use
  Company Number: GB-002147023-NVSC2021GB243055

PATIENT
  Sex: Female

DRUGS (2)
  1. HYDROXYUREA [Suspect]
     Active Substance: HYDROXYUREA
     Dosage: UNK
     Route: 065
  2. ANAGRELIDE [Suspect]
     Active Substance: ANAGRELIDE
     Dosage: UNK
     Route: 065

REACTIONS (7)
  - Renal impairment [Unknown]
  - Pain in extremity [Unknown]
  - Quality of life decreased [Unknown]
  - Skin ulcer [Unknown]
  - Pain of skin [Unknown]
  - Impaired healing [Unknown]
  - Arthropod sting [Unknown]

NARRATIVE: CASE EVENT DATE: 20200901
